FAERS Safety Report 21634837 (Version 2)
Quarter: 2022Q4

REPORT INFORMATION
  Report Type: Spontaneous
  Country: CH (occurrence: CH)
  Receive Date: 20221123
  Receipt Date: 20221226
  Transmission Date: 20230112
  Serious: Yes (Hospitalization, Other)
  Sender: FDA-Public Use
  Company Number: CH-009507513-2211CHE006395

PATIENT

DRUGS (4)
  1. KEYTRUDA [Suspect]
     Active Substance: PEMBROLIZUMAB
     Dosage: 200 MILLIGRAM
     Dates: start: 20211007, end: 20220302
  2. CARBOPLATIN [Suspect]
     Active Substance: CARBOPLATIN
     Indication: Lung adenocarcinoma
     Dosage: 4 CYCLES, AREA UNDER CURVE
     Dates: start: 20211007, end: 20211209
  3. PEMETREXED [Suspect]
     Active Substance: PEMETREXED
     Indication: Lung adenocarcinoma
     Dosage: 500 MILLIGRAM PER CUBIC METRE, Q3W, 4 CYCLES
     Dates: start: 20211007, end: 20211209
  4. PEMETREXED [Suspect]
     Active Substance: PEMETREXED
     Dosage: MAINTENANCE THERAPY
     Dates: start: 20220120

REACTIONS (5)
  - Pleural effusion [Recovering/Resolving]
  - Capillary leak syndrome [Unknown]
  - Malignant neoplasm progression [Unknown]
  - Cerebral disorder [Unknown]
  - Chemotherapy [Unknown]

NARRATIVE: CASE EVENT DATE: 20210101
